FAERS Safety Report 23281261 (Version 2)
Quarter: 2023Q4

REPORT INFORMATION
  Report Type: Spontaneous
  Country: US (occurrence: US)
  Receive Date: 20231211
  Receipt Date: 20231212
  Transmission Date: 20240109
  Serious: Yes (Other)
  Sender: FDA-Public Use
  Company Number: US-GLAXOSMITHKLINE-USCH2023060761

PATIENT

DRUGS (2)
  1. CHAPSTICK CLASSIC CHERRY [Suspect]
     Active Substance: PETROLATUM
     Indication: Product used for unknown indication
     Dosage: UNK
     Dates: start: 20231204
  2. CHAPSTICK NOS [Suspect]
     Active Substance: AVOBENZONE\HOMOSALATE\OCTINOXATE\OCTISALATE\OCTOCRYLENE\OXYBENZONE\TITANIUM DIOXIDE\ZINC OXIDE
     Indication: Product used for unknown indication
     Dosage: UNK

REACTIONS (3)
  - Drug dependence [Unknown]
  - Wrong technique in product usage process [Unknown]
  - Product complaint [Unknown]
